FAERS Safety Report 23451537 (Version 1)
Quarter: 2024Q1

REPORT INFORMATION
  Report Type: Spontaneous
  Country: US (occurrence: US)
  Receive Date: 20240129
  Receipt Date: 20240129
  Transmission Date: 20240410
  Serious: Yes (Disabling)
  Sender: FDA-Public Use
  Company Number: US-SA-SAC20240124001250

PATIENT
  Age: 83 Year
  Sex: Female

DRUGS (1)
  1. DUPILUMAB [Suspect]
     Active Substance: DUPILUMAB
     Indication: Chronic sinusitis
     Dosage: UNK
     Route: 058
     Dates: start: 20230103

REACTIONS (4)
  - Abdominal pain lower [Recovered/Resolved]
  - Condition aggravated [Recovered/Resolved]
  - Vision blurred [Not Recovered/Not Resolved]
  - Product use in unapproved indication [Unknown]

NARRATIVE: CASE EVENT DATE: 20230103
